FAERS Safety Report 22067676 (Version 1)
Quarter: 2023Q1

REPORT INFORMATION
  Report Type: Spontaneous
  Country: CZ (occurrence: CZ)
  Receive Date: 20230307
  Receipt Date: 20230307
  Transmission Date: 20230417
  Serious: Yes (Other)
  Sender: FDA-Public Use
  Company Number: None

PATIENT
  Age: 36 Year
  Sex: Female
  Weight: 52 kg

DRUGS (1)
  1. LATANOPROST [Suspect]
     Active Substance: LATANOPROST
     Indication: Glaucoma
     Dosage: 1KAPKA DO KA?D?HO OKA
     Route: 047

REACTIONS (7)
  - Eye pain [Unknown]
  - Visual impairment [Unknown]
  - Headache [Unknown]
  - Eye swelling [Unknown]
  - Ocular hyperaemia [Unknown]
  - Abnormal sensation in eye [Unknown]
  - Eye pruritus [Unknown]
